FAERS Safety Report 14288846 (Version 1)
Quarter: 2017Q4

REPORT INFORMATION
  Report Type: Spontaneous
  Country: IT (occurrence: IT)
  Receive Date: 20171214
  Receipt Date: 20171214
  Transmission Date: 20180321
  Serious: Yes (Hospitalization)
  Sender: FDA-Public Use
  Company Number: IT-BAYER-2017-240423

PATIENT
  Age: 15 Year
  Sex: Female

DRUGS (1)
  1. ASPIRINA 325 MG [Suspect]
     Active Substance: ASPIRIN
     Dosage: 28 DF, UNK
     Route: 048

REACTIONS (4)
  - Hypoacusis [Unknown]
  - Vomiting [Unknown]
  - Headache [Unknown]
  - Abdominal pain upper [Unknown]

NARRATIVE: CASE EVENT DATE: 20171009
